FAERS Safety Report 5494894-9 (Version None)
Quarter: 2007Q4

REPORT INFORMATION
  Report Type: 
  Country: None (occurrence: None)
  Receive Date: 20071022
  Receipt Date: 20071005
  Transmission Date: 20080405
  Serious: No
  Sender: FDA-Public Use
  Company Number: 2007JP000404

PATIENT
  Age: 3 Year
  Sex: Male
  Weight: 18 kg

DRUGS (1)
  1. PROTOPIC [Suspect]
     Indication: DERMATITIS ATOPIC
     Dosage: 0.03 %, TOPICAL
     Route: 061
     Dates: start: 20050916

REACTIONS (6)
  - DERMATITIS [None]
  - FOLLICULITIS [None]
  - IMPETIGO [None]
  - SKIN EROSION [None]
  - SKIN PAPILLOMA [None]
  - URTICARIA [None]
